FAERS Safety Report 4696625-9 (Version None)
Quarter: 2005Q2

REPORT INFORMATION
  Report Type: 
  Country: None (occurrence: None)
  Receive Date: 20050620
  Receipt Date: 20050125
  Transmission Date: 20051028
  Serious: Yes (Other)
  Sender: FDA-Public Use
  Company Number: 200510606US

PATIENT
  Age: 76 Year
  Weight: 58.2 kg

DRUGS (11)
  1. LANTUS [Suspect]
     Indication: DIABETES MELLITUS
     Dosage: 21 U HS SC
     Route: 058
     Dates: start: 20040401
  2. HUMALOG [Concomitant]
  3. ZITHROMAX [Concomitant]
  4. BUDENOSIDE (RHINOCORT) [Concomitant]
  5. SOTALOL HYDROCHLORIDE (BETAPACE) [Concomitant]
  6. LANOXIN [Concomitant]
  7. ALTACE [Concomitant]
  8. HYDROCHLOROTHIZIDE) [Interacting]
  9. SIMVASTATIN [Concomitant]
  10. CALCIUM CARBONATE (OSCAL) [Concomitant]
  11. TRAVATAN [Concomitant]

REACTIONS (2)
  - BLOOD PRESSURE INCREASED [None]
  - HYPOGLYCAEMIA [None]
